FAERS Safety Report 6717746-2 (Version None)
Quarter: 2010Q2

REPORT INFORMATION
  Report Type: 
  Country: None (occurrence: None)
  Receive Date: 20100504
  Receipt Date: 20100427
  Transmission Date: 20101027
  Serious: Yes (Other)
  Sender: FDA-Public Use
  Company Number: MIN-00577

PATIENT
  Age: 15 Year
  Sex: Female

DRUGS (1)
  1. MINOCYCLINE HCL [Suspect]
     Indication: ACNE
     Dosage: 50 TO 100 MG, BID

REACTIONS (4)
  - DECREASED APPETITE [None]
  - MALAISE [None]
  - POLYARTERITIS NODOSA [None]
  - PYREXIA [None]
